FAERS Safety Report 12694442 (Version 4)
Quarter: 2017Q1

REPORT INFORMATION
  Report Type: Report from Study
  Country: US (occurrence: US)
  Receive Date: 20160829
  Receipt Date: 20170322
  Transmission Date: 20170428
  Serious: Yes (Hospitalization)
  Sender: FDA-Public Use
  Company Number: US-ACTELION-A-US2015-111298

PATIENT
  Age: 72 Year
  Sex: Male
  Weight: 113.38 kg

DRUGS (9)
  1. AMBIEN [Concomitant]
     Active Substance: ZOLPIDEM TARTRATE
  2. WARFARIN [Concomitant]
     Active Substance: WARFARIN
  3. INSULIN GLARGINE [Concomitant]
     Active Substance: INSULIN GLARGINE
  4. ADCIRCA [Suspect]
     Active Substance: TADALAFIL
     Indication: PULMONARY ARTERIAL HYPERTENSION
     Dosage: 20 MG, QD
     Route: 048
     Dates: start: 2014
  5. COUMADIN [Concomitant]
     Active Substance: WARFARIN SODIUM
  6. FLOMAX [Concomitant]
     Active Substance: TAMSULOSIN HYDROCHLORIDE
  7. BUMETANIDE. [Concomitant]
     Active Substance: BUMETANIDE
  8. DILTIAZEM. [Concomitant]
     Active Substance: DILTIAZEM
  9. OPSUMIT [Suspect]
     Active Substance: MACITENTAN
     Indication: PULMONARY ARTERIAL HYPERTENSION
     Dosage: 10 MG, QD
     Route: 048
     Dates: start: 20140417

REACTIONS (25)
  - Atrial fibrillation [Recovered/Resolved]
  - Aortic stenosis [Not Recovered/Not Resolved]
  - International normalised ratio increased [Recovered/Resolved]
  - Heart rate increased [Unknown]
  - Swelling [Not Recovered/Not Resolved]
  - Weight increased [Not Recovered/Not Resolved]
  - Cardiac failure congestive [Not Recovered/Not Resolved]
  - Chronic obstructive pulmonary disease [Not Recovered/Not Resolved]
  - Dyspnoea exertional [Not Recovered/Not Resolved]
  - Respiratory failure [Not Recovered/Not Resolved]
  - Oedema [Not Recovered/Not Resolved]
  - Cardiac failure acute [Not Recovered/Not Resolved]
  - Respiratory arrest [Not Recovered/Not Resolved]
  - Dyspnoea [Not Recovered/Not Resolved]
  - Cough [Not Recovered/Not Resolved]
  - Panic attack [Unknown]
  - Cardioversion [Unknown]
  - Pneumonia [Not Recovered/Not Resolved]
  - Fluid retention [Unknown]
  - Urinary tract infection [Unknown]
  - Condition aggravated [Not Recovered/Not Resolved]
  - Fatigue [Unknown]
  - Cyanosis [Not Recovered/Not Resolved]
  - Haemoptysis [Recovered/Resolved]
  - Generalised oedema [Not Recovered/Not Resolved]

NARRATIVE: CASE EVENT DATE: 20141224
